FAERS Safety Report 22533598 (Version 1)
Quarter: 2023Q2

REPORT INFORMATION
  Report Type: Spontaneous
  Country: US (occurrence: US)
  Receive Date: 20230608
  Receipt Date: 20230608
  Transmission Date: 20230722
  Serious: No
  Sender: FDA-Public Use
  Company Number: US-DENDREON PHARMACEUTICAL LLC-2022DEN000256

PATIENT

DRUGS (7)
  1. PROVENGE [Suspect]
     Active Substance: SIPULEUCEL-T
     Indication: Prostate cancer metastatic
     Dosage: DOSE 1
     Route: 042
     Dates: start: 20220818, end: 20220818
  2. ERLEADA [Concomitant]
     Active Substance: APALUTAMIDE
     Indication: Prostate cancer metastatic
     Dosage: UNK, UNKNOWN
     Route: 065
     Dates: end: 202208
  3. XTANDI [Concomitant]
     Active Substance: ENZALUTAMIDE
     Indication: Prostate cancer metastatic
     Dosage: UNK, UNKNOWN
     Route: 065
     Dates: start: 202208
  4. ELIGARD [Concomitant]
     Active Substance: LEUPROLIDE ACETATE
     Indication: Prostate cancer metastatic
     Dosage: UNK, UNKNOWN
     Route: 065
  5. PROPRANOLOL [Concomitant]
     Active Substance: PROPRANOLOL HYDROCHLORIDE
     Indication: Palpitations
     Dosage: UNK, UNKNOWN
     Route: 065
  6. HYDROCHLOROTHIAZIDE [Concomitant]
     Active Substance: HYDROCHLOROTHIAZIDE
     Indication: Hypertension
     Dosage: UNK, UNKNOWN
     Route: 065
  7. DIETARY SUPPLEMENT [Concomitant]
     Active Substance: DIETARY SUPPLEMENT
     Indication: Supplementation therapy
     Dosage: UNK, UNKNOWN
     Route: 065

REACTIONS (3)
  - Blood pressure decreased [Recovered/Resolved]
  - Loss of consciousness [Recovered/Resolved]
  - Vomiting [Recovered/Resolved]

NARRATIVE: CASE EVENT DATE: 20220822
